FAERS Safety Report 8571320-4 (Version None)
Quarter: 2012Q3

REPORT INFORMATION
  Report Type: 
  Country: None (occurrence: None)
  Receive Date: 20120806
  Receipt Date: 20120725
  Transmission Date: 20120928
  Serious: Yes (Hospitalization)
  Sender: FDA-Public Use
  Company Number: US-BAYER-201025005NA

PATIENT
  Age: 33 Year
  Sex: Female
  Weight: 79 kg

DRUGS (17)
  1. AZITHROMYCIN [Concomitant]
     Dosage: AS NEEDED
     Dates: start: 20061201, end: 20110201
  2. HYDROMORPHONE HYDROCHLORIDE [Concomitant]
     Dosage: UNK
     Dates: start: 20080625, end: 20080625
  3. GABAPENTIN [Concomitant]
     Dosage: UNK
     Dates: start: 20080701, end: 20081201
  4. LYRICA [Concomitant]
  5. NITROFURANT MACRO [Concomitant]
     Dosage: 100 MG, UNK
     Dates: start: 20080410
  6. FEXOFENADINE [Concomitant]
     Dosage: 180 MG, UNK
     Dates: start: 20080317
  7. YASMIN [Suspect]
     Indication: PREMENSTRUAL SYNDROME
     Dosage: UNK
     Route: 048
     Dates: start: 20050318, end: 20080621
  8. OXYCODONE HCL [Concomitant]
     Dosage: UNK
     Dates: start: 20071101, end: 20110201
  9. ULTRAM ER [Concomitant]
     Dosage: 300 MG, UNK
     Dates: start: 20080419
  10. HYDROCODONE BITARTRATE [Concomitant]
     Dosage: UNK
     Dates: start: 20070701, end: 20110401
  11. CYCLOBENZAPRINE [Concomitant]
     Dosage: UNK
     Dates: start: 20070701, end: 20100401
  12. SKELAXIN [Concomitant]
     Dosage: UNK
     Dates: start: 20080401, end: 20081201
  13. IBUPROFEN [Concomitant]
     Dosage: UNK
     Dates: start: 20050801, end: 20081201
  14. FEXOFENADINE [Concomitant]
     Dosage: 180MG
     Dates: start: 20080419
  15. PERCOCET [Concomitant]
  16. LIDODERM [Concomitant]
  17. LEXAPRO [Concomitant]
     Dosage: UNK
     Dates: start: 20071101, end: 20090301

REACTIONS (6)
  - DEEP VEIN THROMBOSIS [None]
  - PAIN [None]
  - PULMONARY EMBOLISM [None]
  - DEPRESSION [None]
  - ANXIETY [None]
  - OEDEMA PERIPHERAL [None]
